FAERS Safety Report 10020437 (Version 1)
Quarter: 2014Q1

REPORT INFORMATION
  Report Type: Spontaneous
  Country: US (occurrence: US)
  Receive Date: 20140319
  Receipt Date: 20140319
  Transmission Date: 20141002
  Serious: No
  Sender: FDA-Public Use
  Company Number: US-BIOGENIDEC-2014BI022563

PATIENT
  Sex: Female
  Weight: 49 kg

DRUGS (3)
  1. TECFIDERA [Suspect]
     Indication: PRODUCT USED FOR UNKNOWN INDICATION
  2. TECFIDERA [Suspect]
     Indication: PRODUCT USED FOR UNKNOWN INDICATION
     Route: 048
     Dates: start: 20140221, end: 20140303
  3. ASPIRIN [Concomitant]
     Indication: PROPHYLAXIS

REACTIONS (6)
  - Feeling drunk [Unknown]
  - Insomnia [Unknown]
  - Scratch [Unknown]
  - Thirst [Unknown]
  - Pruritus [Unknown]
  - Flushing [Unknown]
